FAERS Safety Report 9433960 (Version 1)
Quarter: 2013Q3

REPORT INFORMATION
  Report Type: Spontaneous
  Country: US (occurrence: US)
  Receive Date: 20130801
  Receipt Date: 20130801
  Transmission Date: 20140515
  Serious: Yes (Hospitalization)
  Sender: FDA-Public Use
  Company Number: US-AMGEN-USASP2013052690

PATIENT
  Age: 74 Year
  Sex: Male

DRUGS (6)
  1. XGEVA [Suspect]
     Indication: PROSTATE CANCER METASTATIC
     Dosage: UNK
     Route: 065
     Dates: start: 2013
  2. FUROSEMIDE [Concomitant]
  3. COREG [Concomitant]
  4. VITAMIN D                          /00107901/ [Concomitant]
  5. CALCIUM [Concomitant]
  6. LUPRON [Concomitant]

REACTIONS (5)
  - Blood pressure decreased [Unknown]
  - Dizziness [Unknown]
  - Asthenia [Unknown]
  - Nausea [Unknown]
  - Dyspnoea [Unknown]
